FAERS Safety Report 24247881 (Version 2)
Quarter: 2024Q3

REPORT INFORMATION
  Report Type: Spontaneous
  Country: SE (occurrence: SE)
  Receive Date: 20240826
  Receipt Date: 20240828
  Transmission Date: 20241016
  Serious: Yes (Other)
  Sender: AMGEN
  Company Number: SE-UCBSA-2024041011

PATIENT
  Sex: Female

DRUGS (1)
  1. EVENITY [Suspect]
     Active Substance: ROMOSOZUMAB-AQQG
     Indication: Osteoporosis
     Dosage: UNK, VERY LIKELY 12 MONTHS AGO, ON AUG 7, I TOOK MY 12TH AND FINAL SHOTS IN THE TREATMENT SERIES
     Route: 065
     Dates: start: 2023

REACTIONS (3)
  - Appendicitis [Unknown]
  - Appendicectomy [Unknown]
  - Product temperature excursion issue [Unknown]

NARRATIVE: CASE EVENT DATE: 20240718
